FAERS Safety Report 8134166-7 (Version None)
Quarter: 2012Q1

REPORT INFORMATION
  Report Type: 
  Country: None (occurrence: None)
  Receive Date: 20120213
  Receipt Date: 20120213
  Transmission Date: 20120608
  Serious: No
  Sender: FDA-Public Use
  Company Number: None

PATIENT
  Sex: Female

DRUGS (4)
  1. PRISTIQ [Concomitant]
  2. LETROZOLE [Suspect]
     Dosage: 2.5MG ORALLY ONCE DAILY
     Route: 048
     Dates: start: 20111109
  3. XANAX [Concomitant]
  4. BUSPIRONE HCL [Concomitant]

REACTIONS (8)
  - DISTURBANCE IN ATTENTION [None]
  - ARTHRALGIA [None]
  - HEADACHE [None]
  - FEELING ABNORMAL [None]
  - COGNITIVE DISORDER [None]
  - AMNESIA [None]
  - FATIGUE [None]
  - MENTAL IMPAIRMENT [None]
